FAERS Safety Report 25704251 (Version 1)
Quarter: 2025Q3

REPORT INFORMATION
  Report Type: Spontaneous
  Country: US (occurrence: US)
  Receive Date: 20250820
  Receipt Date: 20250820
  Transmission Date: 20251020
  Serious: Yes (Other)
  Sender: STRIDES
  Company Number: US-STRIDES ARCOLAB LIMITED-2025SP006059

PATIENT
  Age: 61 Year
  Sex: Male

DRUGS (5)
  1. TACROLIMUS [Interacting]
     Active Substance: TACROLIMUS
     Indication: Immunosuppressant drug therapy
     Route: 065
  2. PREDNISOLONE [Suspect]
     Active Substance: PREDNISOLONE
     Indication: Immunosuppressant drug therapy
     Route: 065
  3. PAXLOVID [Interacting]
     Active Substance: NIRMATRELVIR\RITONAVIR
     Indication: COVID-19 pneumonia
     Route: 065
  4. PHENYTOIN [Interacting]
     Active Substance: PHENYTOIN
     Indication: Drug level above therapeutic
     Route: 065
  5. MYCOPHENOLATE MOFETIL [Concomitant]
     Active Substance: MYCOPHENOLATE MOFETIL
     Indication: Immunosuppressant drug therapy
     Route: 065

REACTIONS (8)
  - Neurotoxicity [Recovered/Resolved]
  - Diplopia [Recovered/Resolved]
  - Scleral disorder [Recovered/Resolved]
  - Headache [Recovered/Resolved]
  - Tremor [Recovered/Resolved]
  - Immunosuppressant drug level increased [Recovered/Resolved]
  - Drug interaction [Unknown]
  - Off label use [Unknown]
